FAERS Safety Report 5185345-2 (Version None)
Quarter: 2006Q4

REPORT INFORMATION
  Report Type: 
  Country: None (occurrence: None)
  Receive Date: 20061220
  Receipt Date: 20061213
  Transmission Date: 20070319
  Serious: Yes (Death, Other)
  Sender: FDA-Public Use
  Company Number: PHBS2006ES19460

PATIENT
  Age: 32 Year
  Sex: Male

DRUGS (3)
  1. PREDNISONE TAB [Concomitant]
  2. METHYLPREDNISOLONE [Concomitant]
     Indication: LIVER TRANSPLANT REJECTION
     Dosage: 1 G/D
     Route: 042
  3. CYCLOSPORINE [Suspect]
     Indication: LIVER TRANSPLANT
     Route: 065

REACTIONS (4)
  - LIVER TRANSPLANT REJECTION [None]
  - LUNG ADENOCARCINOMA STAGE IV [None]
  - METASTASIS [None]
  - RENAL FAILURE [None]
